FAERS Safety Report 15148122 (Version 1)
Quarter: 2018Q3

REPORT INFORMATION
  Report Type: Spontaneous
  Country: FR (occurrence: FR)
  Receive Date: 20180716
  Receipt Date: 20180716
  Transmission Date: 20181010
  Serious: Yes (Death, Other)
  Sender: FDA-Public Use
  Company Number: PHHY2016FR133033

PATIENT
  Age: 3 Year
  Sex: Male

DRUGS (5)
  1. CARMUSTINE [Suspect]
     Active Substance: CARMUSTINE
     Indication: GLIOMA
     Dosage: 20 MG/M2, UNK
     Route: 041
  2. CISPLATIN. [Suspect]
     Active Substance: CISPLATIN
     Indication: GLIOMA
     Dosage: 20 MG/M2, UNK
     Route: 041
  3. METHOTREXATE. [Suspect]
     Active Substance: METHOTREXATE
     Indication: GLIOMA
     Dosage: 12 G/M2, UNK
     Route: 041
  4. METHOTREXATE. [Suspect]
     Active Substance: METHOTREXATE
     Dosage: 12000 MG/M2, UNK
     Route: 041
  5. FOLINIC ACID [Concomitant]
     Active Substance: LEUCOVORIN
     Indication: GLIOMA
     Dosage: 15 MG/M2, QID
     Route: 041

REACTIONS (10)
  - Disease recurrence [Fatal]
  - Thrombocytopenia [Unknown]
  - Disease progression [Fatal]
  - Toxicity to various agents [Unknown]
  - Febrile neutropenia [Unknown]
  - Off label use [Unknown]
  - Glioma [Fatal]
  - Sepsis [Unknown]
  - Product use in unapproved indication [Unknown]
  - Anaemia [Unknown]
